FAERS Safety Report 22096005 (Version 4)
Quarter: 2023Q2

REPORT INFORMATION
  Report Type: Spontaneous
  Country: US (occurrence: US)
  Receive Date: 20230315
  Receipt Date: 20230407
  Transmission Date: 20230722
  Serious: Yes (Death, Other)
  Sender: FDA-Public Use
  Company Number: US-BIOGEN-2023BI01192281

PATIENT
  Sex: Female

DRUGS (1)
  1. TYSABRI [Suspect]
     Active Substance: NATALIZUMAB
     Indication: Multiple sclerosis
     Route: 050
     Dates: start: 20081031, end: 20221201

REACTIONS (5)
  - Abdominal compartment syndrome [Fatal]
  - Sepsis [Unknown]
  - Colon gangrene [Unknown]
  - Small intestine gangrene [Unknown]
  - Intestinal ischaemia [Unknown]
